FAERS Safety Report 6538058-6 (Version None)
Quarter: 2010Q1

REPORT INFORMATION
  Report Type: 
  Country: None (occurrence: None)
  Receive Date: 20100111
  Receipt Date: 20091224
  Transmission Date: 20100710
  Serious: Yes (Death, Life-Threatening)
  Sender: FDA-Public Use
  Company Number: THYM-1001037

PATIENT
  Age: 52 Year
  Sex: Male
  Weight: 57 kg

DRUGS (43)
  1. THYMOGLOBULIN [Suspect]
     Indication: ACUTE GRAFT VERSUS HOST DISEASE
     Dosage: 70 MG, QD, INTRAVENOUS
     Route: 042
     Dates: start: 20090213, end: 20090213
  2. URSODIOL [Concomitant]
  3. LANSOPRAZOLE [Concomitant]
  4. FEXOFENADINE HYDROCHLORIDE [Concomitant]
  5. MAINTENANCE MEDIUM [Concomitant]
  6. DANAPAROID SODIUM (DANAPAROID SODIUM) [Concomitant]
  7. MICAFUNGIN SODIUM (MICAFUNGIN SODIUM) [Concomitant]
  8. HEPARIN SODIUM [Concomitant]
  9. LACTATED RINGER'S (CALCIUM CHLORIDE DIHYDRATE, POTASSIUM CHLORIDE, SOD [Concomitant]
  10. TEICOPLANIN (TEICOPLANIN) [Concomitant]
  11. HYDROCORTISONE SODIUM SUCCINATE [Concomitant]
  12. FREEZE-DRIED ION-EXCHANGE-RESI [Concomitant]
  13. MULTIPLE VITAMINS (ASCORBIC ACID, ERGOCALCIFEROL, FOLIC ACID, RETINOL, [Concomitant]
  14. METHYLPREDNISOLONE SODIUM SUCCINATE [Concomitant]
  15. MANGANESE CHLORIDE_ZINC CHLORIDE [Concomitant]
  16. METOCLOPRAMIDE (METOCLOPRAMIDE HYDROCHLORIDE) [Concomitant]
  17. FOSFOMYCIN (FOSFOMYCIN) [Concomitant]
  18. FILGRASTIM (GENETICAL RECOMBINATION) [Concomitant]
  19. VANCOMYCIN HYDROCHLORIDE [Concomitant]
  20. AMPHOTERICIN B [Concomitant]
  21. DEFEROXAMINE MESILATE (DEFEROXAMINE MESILATE) [Concomitant]
  22. INSULIN HUMAN (GENETICAL RECOMBINATION) [Concomitant]
  23. SODIUM HYALURONATE [Concomitant]
  24. SULBACTAM SODIUM_CEFOPERAZONE SODIUM [Concomitant]
  25. AMINO ACIDS [Concomitant]
  26. LOPERAMIDE HYDROCHLORIDE [Concomitant]
  27. QUAZEPAM [Concomitant]
  28. ZOLPIDEM TARTRATE [Concomitant]
  29. ULINASTATIN (ULINASTATIN) [Concomitant]
  30. ALBUMIN (HUMAN) [Concomitant]
  31. FREEZE-DRIED PLASMIN TREATED H [Concomitant]
  32. VALSARTAN [Concomitant]
  33. PENTAZOCINE LACTATE [Concomitant]
  34. FOSCARNET SODIUM [Concomitant]
  35. FLURBIPROFEN AXETIL (FLURBIPROFEN AXETIL) [Concomitant]
  36. CALCIUM GLUCONATE [Concomitant]
  37. GABEXATE MESILATE (GABEXATE MESILATE) [Concomitant]
  38. OMEPRAZOLE SODIUM (OMEPRAZOLE SODIUM) [Concomitant]
  39. EXTRACT FROM HEMOLYSED BLOOD OF YOUNG CATTLE [Concomitant]
  40. FIBRINOLYSIN DEOXYRIBONUCLEASE [Concomitant]
  41. LIDOCAINE HYDROCHLORIDE [Concomitant]
  42. NAFAMOSTAT MESILATE (NAFAMOSTAT MESILATE) [Concomitant]
  43. PREDNISOLONE SODIUM SUCCINATE INJ [Concomitant]

REACTIONS (2)
  - ACUTE GRAFT VERSUS HOST DISEASE IN LIVER [None]
  - DISSEMINATED CYTOMEGALOVIRAL INFECTION [None]
